FAERS Safety Report 7465073-0 (Version None)
Quarter: 2011Q2

REPORT INFORMATION
  Report Type: 
  Country: None (occurrence: None)
  Receive Date: 20110509
  Receipt Date: 20110428
  Transmission Date: 20111010
  Serious: Yes (Hospitalization)
  Sender: FDA-Public Use
  Company Number: US-JNJFOC-20110500823

PATIENT
  Sex: Female
  Weight: 63.5 kg

DRUGS (12)
  1. FENTANYL-100 [Suspect]
     Route: 062
  2. OXYCODONE HCL [Concomitant]
     Indication: BREAKTHROUGH PAIN
     Route: 048
  3. LIPITOR [Concomitant]
     Indication: BLOOD CHOLESTEROL
     Route: 048
  4. FENTANYL [Suspect]
     Route: 062
  5. ATENOLOL [Concomitant]
     Indication: CARDIAC DISORDER
     Route: 048
  6. PREMARIN [Concomitant]
     Indication: HORMONE REPLACEMENT THERAPY
     Route: 048
  7. FENTANYL-100 [Suspect]
     Indication: FIBROMYALGIA
     Route: 062
  8. TYLOX [Concomitant]
     Indication: BREAKTHROUGH PAIN
     Route: 048
  9. LAMICTAL [Concomitant]
     Indication: PAIN
     Route: 048
  10. FENTANYL [Suspect]
     Indication: FIBROMYALGIA
     Route: 062
  11. PROVERA [Concomitant]
     Indication: HORMONE REPLACEMENT THERAPY
     Route: 048
  12. PROZAC [Concomitant]
     Indication: PAIN
     Route: 048

REACTIONS (6)
  - WEIGHT DECREASED [None]
  - ADVERSE EVENT [None]
  - CARCINOID TUMOUR OF THE APPENDIX [None]
  - DRUG INEFFECTIVE [None]
  - THROMBOSIS [None]
  - DRUG DOSE OMISSION [None]
